FAERS Safety Report 4476634-5 (Version None)
Quarter: 2004Q4

REPORT INFORMATION
  Report Type: 
  Country: None (occurrence: None)
  Receive Date: 20041013
  Receipt Date: 20040924
  Transmission Date: 20050328
  Serious: Yes (Other)
  Sender: FDA-Public Use
  Company Number: USA040979222

PATIENT
  Sex: Female

DRUGS (1)
  1. ZYPREXA [Suspect]
     Indication: BIPOLAR DISORDER
     Dosage: 5 MG/1 DAY

REACTIONS (4)
  - BACTERIAL INFECTION [None]
  - COLONIC OBSTRUCTION [None]
  - HEPATIC ENZYME INCREASED [None]
  - SEPSIS [None]
